FAERS Safety Report 15490871 (Version 3)
Quarter: 2020Q1

REPORT INFORMATION
  Report Type: Report from Study
  Country: None (occurrence: US)
  Receive Date: 20181011
  Receipt Date: 20200228
  Transmission Date: 20200409
  Serious: No
  Sender: FDA-Public Use
  Company Number: US-ABBVIE-18K-163-2513207-00

PATIENT
  Sex: Female
  Weight: 68.1 kg

DRUGS (3)
  1. CYMBALTA [Concomitant]
     Active Substance: DULOXETINE HYDROCHLORIDE
     Indication: PAIN
  2. LIPITOR [Concomitant]
     Active Substance: ATORVASTATIN CALCIUM
     Indication: BLOOD CHOLESTEROL
  3. HUMIRA [Suspect]
     Active Substance: ADALIMUMAB
     Indication: PSORIATIC ARTHROPATHY
     Route: 058
     Dates: start: 20170713

REACTIONS (7)
  - Vertigo [Unknown]
  - Electrocardiogram abnormal [Unknown]
  - Sinus congestion [Unknown]
  - Nasopharyngitis [Unknown]
  - Sinonasal obstruction [Unknown]
  - Asthenia [Unknown]
  - Procedural complication [Unknown]
